FAERS Safety Report 14406274 (Version 1)
Quarter: 2018Q1

REPORT INFORMATION
  Report Type: Spontaneous
  Country: FR (occurrence: FR)
  Receive Date: 20180118
  Receipt Date: 20180118
  Transmission Date: 20180509
  Serious: Yes (Death, Hospitalization)
  Sender: FDA-Public Use
  Company Number: FR-PFIZER INC-2018023781

PATIENT
  Age: 77 Year
  Sex: Male

DRUGS (11)
  1. DOCETAXEL. [Suspect]
     Active Substance: DOCETAXEL
     Indication: ADENOCARCINOMA GASTRIC
     Dosage: 100 MG, OVER ONE HOUR (1ST COURSE)
     Route: 042
     Dates: start: 20170918, end: 20170918
  2. DOCETAXEL. [Suspect]
     Active Substance: DOCETAXEL
     Dosage: 100 MG, OVER ONE HOUR (2ND COURSE)
     Route: 042
     Dates: start: 20171002, end: 20171002
  3. IMODIUM [Concomitant]
     Active Substance: LOPERAMIDE HYDROCHLORIDE
     Indication: DIARRHOEA
     Dosage: UNK
     Dates: start: 201709
  4. FOLINIC ACID [Concomitant]
     Active Substance: LEUCOVORIN
     Indication: ADENOCARCINOMA GASTRIC
     Dosage: UNK
     Dates: start: 201709
  5. G-CSF [Concomitant]
     Active Substance: GRANULOCYTE COLONY-STIMULATING FACTOR NOS
     Dosage: UNK
     Dates: start: 20170919
  6. OXALIPLATIN ACCORD [Suspect]
     Active Substance: OXALIPLATIN
     Dosage: 170 MG, OVER 2 HOURS (2ND COURSE)
     Route: 042
     Dates: start: 20171002, end: 20171002
  7. FLUOROURACIL ACCORD /00098801/ [Suspect]
     Active Substance: FLUOROURACIL
     Indication: ADENOCARCINOMA GASTRIC
     Dosage: 5000 MG, DAILY (1ST COURSE)
     Route: 042
     Dates: start: 20170918, end: 201709
  8. FLUOROURACIL ACCORD /00098801/ [Suspect]
     Active Substance: FLUOROURACIL
     Dosage: 5000 MG, DAILY (2ND COURSE)
     Route: 042
     Dates: start: 20171002, end: 201710
  9. G-CSF [Concomitant]
     Active Substance: GRANULOCYTE COLONY-STIMULATING FACTOR NOS
     Dosage: UNK
     Dates: start: 20171003
  10. OXALIPLATIN ACCORD [Suspect]
     Active Substance: OXALIPLATIN
     Indication: ADENOCARCINOMA GASTRIC
     Dosage: 170 MG, OVER 2 HOURS (1ST COURSE)
     Route: 042
     Dates: start: 20170918, end: 20170918
  11. KARDEGIC [Concomitant]
     Active Substance: ASPIRIN DL-LYSINE
     Dosage: UNK
     Dates: start: 20170918

REACTIONS (1)
  - Gastrointestinal necrosis [Fatal]

NARRATIVE: CASE EVENT DATE: 201710
